FAERS Safety Report 15979705 (Version 1)
Quarter: 2019Q1

REPORT INFORMATION
  Report Type: Spontaneous
  Country: US (occurrence: US)
  Receive Date: 20190217
  Receipt Date: 20190217
  Transmission Date: 20190418
  Serious: No
  Sender: FDA-Public Use
  Company Number: None

PATIENT
  Age: 58 Year
  Sex: Female
  Weight: 63 kg

DRUGS (12)
  1. ESCITALOPRAM OXALATE GENERIC FOR LEXAPRO [Suspect]
     Active Substance: ESCITALOPRAM OXALATE
     Indication: DEPRESSION
     Dosage: ?          QUANTITY:30 TABLET(S);?
     Route: 048
     Dates: start: 20190213, end: 20190217
  2. MULTI VITAMIN, [Concomitant]
  3. VITAMIN B COMPLEX [Concomitant]
     Active Substance: CYANOCOBALAMIN\DEXPANTHENOL\NIACINAMIDE\PYRIDOXINE HYDROCHLORIDE\RIBOFLAVIN 5^-PHOSPHATE SODIUM\THIAMINE HYDROCHLORIDE\VITAMIN B COMPLEX
  4. PROGESTERONE. [Concomitant]
     Active Substance: PROGESTERONE
  5. ESCITALOPRAM OXALATE GENERIC FOR LEXAPRO [Suspect]
     Active Substance: ESCITALOPRAM OXALATE
     Indication: ANXIETY
     Dosage: ?          QUANTITY:30 TABLET(S);?
     Route: 048
     Dates: start: 20190213, end: 20190217
  6. BENADRYL [Concomitant]
     Active Substance: DIPHENHYDRAMINE HYDROCHLORIDE
  7. GARLIC. [Concomitant]
     Active Substance: GARLIC
  8. PRIMROSE OIL [Concomitant]
  9. ESTRADIOL. [Concomitant]
     Active Substance: ESTRADIOL
  10. VITAMIN D3 [Concomitant]
     Active Substance: CHOLECALCIFEROL
  11. MAGNESIUM [Concomitant]
     Active Substance: MAGNESIUM
  12. FLAXSEED OIL, [Concomitant]

REACTIONS (7)
  - Agitation [None]
  - Nausea [None]
  - Restlessness [None]
  - Nervousness [None]
  - Headache [None]
  - Anxiety [None]
  - Feeling jittery [None]

NARRATIVE: CASE EVENT DATE: 20190215
